FAERS Safety Report 6820752-0 (Version None)
Quarter: 2010Q3

REPORT INFORMATION
  Report Type: 
  Country: None (occurrence: None)
  Receive Date: 20100707
  Receipt Date: 20070530
  Transmission Date: 20110219
  Serious: No
  Sender: FDA-Public Use
  Company Number: US-PFIZER INC-2007045017

PATIENT
  Sex: Female
  Weight: 49.1 kg

DRUGS (2)
  1. ZOLOFT [Suspect]
     Indication: DEPRESSION
  2. CHANTIX [Suspect]
     Indication: SMOKING CESSATION THERAPY
     Route: 048
     Dates: start: 20070522, end: 20070526

REACTIONS (8)
  - ABDOMINAL DISTENSION [None]
  - ANGER [None]
  - COORDINATION ABNORMAL [None]
  - DYSGEUSIA [None]
  - FEELING ABNORMAL [None]
  - FLATULENCE [None]
  - IRRITABILITY [None]
  - YAWNING [None]
